FAERS Safety Report 5939126-X (Version None)
Quarter: 2008Q4

REPORT INFORMATION
  Report Type: 
  Country: None (occurrence: None)
  Receive Date: 20081103
  Receipt Date: 20081029
  Transmission Date: 20090506
  Serious: Yes (Hospitalization)
  Sender: FDA-Public Use
  Company Number: DE-BRISTOL-MYERS SQUIBB COMPANY-14318380

PATIENT
  Age: 50 Year
  Sex: Male
  Weight: 66 kg

DRUGS (5)
  1. CISPLATIN [Suspect]
     Indication: HEAD AND NECK CANCER
     Dosage: INFUSION STARTED ON 01MAY08.
     Dates: start: 20080730, end: 20080730
  2. BLINDED: PLACEBO [Suspect]
     Indication: HEAD AND NECK CANCER
     Dosage: BLINDED STUDY DRUG:500 MG/M2
     Dates: start: 20080730, end: 20080730
  3. FOLIC ACID [Concomitant]
     Dates: start: 20080430
  4. VITAMIN B-12 [Concomitant]
     Dates: start: 20080422
  5. DEXAMETHASONE [Concomitant]
     Dates: start: 20080430

REACTIONS (1)
  - ANAEMIA [None]
